FAERS Safety Report 4728609-6 (Version None)
Quarter: 2005Q3

REPORT INFORMATION
  Report Type: 
  Country: None (occurrence: None)
  Receive Date: 20050729
  Receipt Date: 20020410
  Transmission Date: 20060218
  Serious: Yes (Hospitalization)
  Sender: FDA-Public Use
  Company Number: US-AMGEN-02040544

PATIENT
  Sex: Female

DRUGS (7)
  1. ENBREL [Suspect]
     Indication: RHEUMATOID ARTHRITIS
     Route: 058
     Dates: start: 20020207, end: 20020221
  2. ENBREL [Suspect]
  3. METHOTREXATE [Suspect]
     Route: 048
     Dates: start: 20010712
  4. ZOCOR [Suspect]
     Dosage: UNKNOWN
     Route: 048
     Dates: start: 20010405
  5. LODINE XL [Concomitant]
     Dates: start: 20000101
  6. PAXIL [Concomitant]
  7. PREMARIN [Concomitant]

REACTIONS (5)
  - ATELECTASIS [None]
  - BLOOD TRIGLYCERIDES INCREASED [None]
  - PANCREATITIS [None]
  - RESPIRATORY DISORDER [None]
  - RESPIRATORY DISTRESS [None]
